FAERS Safety Report 13942904 (Version 10)
Quarter: 2021Q3

REPORT INFORMATION
  Report Type: Spontaneous
  Country: US (occurrence: US)
  Receive Date: 20170907
  Receipt Date: 20210902
  Transmission Date: 20211014
  Serious: Yes (Disabling, Other)
  Sender: FDA-Public Use
  Company Number: US-PFIZER INC-2017382696

PATIENT
  Age: 42 Year
  Sex: Female

DRUGS (5)
  1. CELEBREX [Suspect]
     Active Substance: CELECOXIB
     Indication: CERVICAL SPINAL STENOSIS
     Dosage: 400 MG, UNK [FOUR 100 (MG) CAPSULES]
  2. CELEBREX [Suspect]
     Active Substance: CELECOXIB
     Indication: FACET JOINT SYNDROME
  3. CELEBREX [Suspect]
     Active Substance: CELECOXIB
     Indication: SPINAL OSTEOARTHRITIS
  4. CELEBREX [Suspect]
     Active Substance: CELECOXIB
     Indication: PAIN
  5. CELEBREX [Suspect]
     Active Substance: CELECOXIB
     Indication: FACET JOINT SYNDROME
     Dosage: 100 MG, 3X/DAY (THREE TIMES DAILY AS NEEDED FOR PAIN)
     Route: 048
     Dates: start: 20210607

REACTIONS (14)
  - Asthenia [Unknown]
  - Pain in extremity [Unknown]
  - Condition aggravated [Unknown]
  - Pain [Unknown]
  - Pain in jaw [Unknown]
  - Neuralgia [Unknown]
  - Drug dependence [Unknown]
  - Aphonia [Unknown]
  - Gait disturbance [Unknown]
  - COVID-19 [Unknown]
  - Impaired driving ability [Unknown]
  - Off label use [Unknown]
  - Spinal cord injury [Unknown]
  - Meniscus injury [Unknown]
